FAERS Safety Report 9445959 (Version 1)
Quarter: 2013Q3

REPORT INFORMATION
  Report Type: Spontaneous
  Country: US (occurrence: US)
  Receive Date: 20130807
  Receipt Date: 20130807
  Transmission Date: 20140515
  Serious: Yes (Other)
  Sender: FDA-Public Use
  Company Number: US-BAYER-2013-093023

PATIENT
  Age: 64 Year
  Sex: Female
  Weight: 59 kg

DRUGS (4)
  1. PHILLIPS^ MILK OF MAGNESIA [Suspect]
     Indication: CONSTIPATION
     Dosage: 2-4 TBSP, PRN
     Route: 048
     Dates: start: 1970
  2. CARBATROL [Concomitant]
  3. DILANTIN [Concomitant]
  4. GABITRIL [Concomitant]

REACTIONS (4)
  - Dysarthria [None]
  - Coordination abnormal [None]
  - Tongue disorder [None]
  - Drug ineffective [None]
